FAERS Safety Report 5919316-2 (Version None)
Quarter: 2008Q4

REPORT INFORMATION
  Report Type: 
  Country: None (occurrence: None)
  Receive Date: 20081015
  Receipt Date: 20081006
  Transmission Date: 20090506
  Serious: Yes (Other)
  Sender: FDA-Public Use
  Company Number: PHHY2008AT18931

PATIENT
  Sex: Male

DRUGS (4)
  1. SEBIVO [Suspect]
     Indication: HEPATITIS B
     Dosage: 600 MG, QD
     Dates: start: 20071001, end: 20080822
  2. ALDACTONE [Concomitant]
     Dosage: 50 MG, QD
     Dates: start: 20061101
  3. PANTOPRAZOLE SODIUM [Concomitant]
     Dosage: 40 MG, QD
     Dates: start: 20061101
  4. INDERAL [Concomitant]
     Dosage: 20 MG, BID
     Dates: start: 20061101

REACTIONS (2)
  - BLOOD CREATINE PHOSPHOKINASE INCREASED [None]
  - HEPATIC NEOPLASM MALIGNANT [None]
